FAERS Safety Report 5220751-9 (Version None)
Quarter: 2007Q1

REPORT INFORMATION
  Report Type: 
  Country: None (occurrence: None)
  Receive Date: 20070125
  Receipt Date: 20070125
  Transmission Date: 20070707
  Serious: Yes (Hospitalization)
  Sender: FDA-Public Use
  Company Number: None

PATIENT
  Sex: Male
  Weight: 68.4932 kg

DRUGS (2)
  1. LANTUS [Suspect]
     Indication: DIABETES MELLITUS
     Dosage: 15 UNITS IN AM; 10 UNITS IN PM
  2. BLOOD PRESSURE MEDS [Concomitant]

REACTIONS (1)
  - BLOOD GLUCOSE DECREASED [None]
